FAERS Safety Report 17318902 (Version 3)
Quarter: 2020Q2

REPORT INFORMATION
  Report Type: Spontaneous
  Country: US (occurrence: US)
  Receive Date: 20200124
  Receipt Date: 20200619
  Transmission Date: 20200713
  Serious: Yes (Hospitalization, Other)
  Sender: FDA-Public Use
  Company Number: US-BIOMARINAP-US-2020-128014

PATIENT
  Age: 1 Year
  Sex: Female

DRUGS (5)
  1. ALDURAZYME [Suspect]
     Active Substance: LARONIDASE
     Dosage: 0.58 MILLIGRAM/KILOGRAM, QW
     Route: 042
  2. DIPHENHYDRAMINE. [Concomitant]
     Active Substance: DIPHENHYDRAMINE
     Indication: PRODUCT USED FOR UNKNOWN INDICATION
     Dosage: UNK
     Dates: start: 20190827
  3. ALDURAZYME [Suspect]
     Active Substance: LARONIDASE
     Indication: MUCOPOLYSACCHARIDOSIS I
     Dosage: 8.7 MILLIGRAM, QW
     Route: 042
     Dates: start: 20190827
  4. ACETAMINOPHEN. [Concomitant]
     Active Substance: ACETAMINOPHEN
     Indication: PRODUCT USED FOR UNKNOWN INDICATION
     Dosage: UNK
     Dates: start: 20190827
  5. METHYLPREDNISOLONE. [Concomitant]
     Active Substance: METHYLPREDNISOLONE
     Indication: PRODUCT USED FOR UNKNOWN INDICATION
     Dosage: UNK
     Dates: start: 20190827

REACTIONS (4)
  - Procedural complication [Recovered/Resolved]
  - Central venous catheterisation [Recovered/Resolved]
  - Haemolytic anaemia [Recovering/Resolving]
  - Therapeutic aspiration [Recovered/Resolved]

NARRATIVE: CASE EVENT DATE: 20200107
